FAERS Safety Report 24293988 (Version 1)
Quarter: 2024Q3

REPORT INFORMATION
  Report Type: Spontaneous
  Country: US (occurrence: None)
  Receive Date: 20240906
  Receipt Date: 20240906
  Transmission Date: 20241017
  Serious: No
  Sender: DOMPE FARMACEUTICI
  Company Number: US-FARMAPROD-202403-1006

PATIENT
  Age: 75 Year
  Sex: Male

DRUGS (9)
  1. OXERVATE [Suspect]
     Active Substance: CENEGERMIN-BKBJ
     Indication: Neurotrophic keratopathy
     Route: 047
     Dates: start: 20240312, end: 20240403
  2. DIFLUPREDNATE [Concomitant]
     Active Substance: DIFLUPREDNATE
  3. SIMBRINZA [Concomitant]
     Active Substance: BRIMONIDINE TARTRATE\BRINZOLAMIDE
     Dosage: 1 %-0.2 %
  4. MOXIFLOXACIN [Concomitant]
     Active Substance: MOXIFLOXACIN
  5. ERYTHROMYCIN [Concomitant]
     Active Substance: ERYTHROMYCIN
  6. EDURANT [Concomitant]
     Active Substance: RILPIVIRINE HYDROCHLORIDE
  7. TIVICAY [Concomitant]
     Active Substance: DOLUTEGRAVIR SODIUM
  8. DUREZOL [Concomitant]
     Active Substance: DIFLUPREDNATE
     Dates: start: 20240326
  9. UNSPECIFIED INGREDIENT [Concomitant]
     Active Substance: UNSPECIFIED INGREDIENT

REACTIONS (14)
  - Lacrimation increased [Unknown]
  - Photophobia [Not Recovered/Not Resolved]
  - Eye pain [Unknown]
  - Ocular hyperaemia [Unknown]
  - Eye swelling [Unknown]
  - Foreign body sensation in eyes [Unknown]
  - Eye irritation [Unknown]
  - Visual acuity reduced [Not Recovered/Not Resolved]
  - Eye discharge [Unknown]
  - Eyelid irritation [Unknown]
  - Sinus pain [Unknown]
  - Temporomandibular pain and dysfunction syndrome [Unknown]
  - Ocular discomfort [Unknown]
  - Eye irritation [Unknown]

NARRATIVE: CASE EVENT DATE: 20240326
